FAERS Safety Report 4680814-3 (Version None)
Quarter: 2005Q2

REPORT INFORMATION
  Report Type: 
  Country: None (occurrence: None)
  Receive Date: 20050603
  Receipt Date: 20031028
  Transmission Date: 20051028
  Serious: Yes (Hospitalization)
  Sender: FDA-Public Use
  Company Number: 200311284JP

PATIENT
  Age: 58 Year
  Sex: Female
  Weight: 51.2 kg

DRUGS (4)
  1. ARAVA [Suspect]
     Indication: RHEUMATOID ARTHRITIS
     Route: 048
     Dates: start: 20031011, end: 20031025
  2. PREDONINE [Concomitant]
     Indication: RHEUMATOID ARTHRITIS
     Route: 048
     Dates: start: 20030902, end: 20031027
  3. MOBIC [Concomitant]
     Indication: RHEUMATOID ARTHRITIS
     Route: 048
     Dates: start: 20030902, end: 20031027
  4. AMINOFLUID [Concomitant]
     Indication: NUTRITIONAL SUPPORT
     Dates: start: 20031025, end: 20031029

REACTIONS (6)
  - BLOOD POTASSIUM INCREASED [None]
  - BLOOD URINE PRESENT [None]
  - GASTROINTESTINAL EROSION [None]
  - GASTROINTESTINAL HAEMORRHAGE [None]
  - HAEMOLYSIS [None]
  - MELAENA [None]
